FAERS Safety Report 6080107-6 (Version None)
Quarter: 2009Q1

REPORT INFORMATION
  Report Type: 
  Country: None (occurrence: None)
  Receive Date: 20090217
  Receipt Date: 20090205
  Transmission Date: 20090719
  Serious: Yes (Other)
  Sender: FDA-Public Use
  Company Number: US-PFIZER INC-2009167565

PATIENT
  Sex: Female
  Weight: 61.234 kg

DRUGS (1)
  1. CHANTIX [Suspect]
     Indication: SMOKING CESSATION THERAPY
     Route: 048
     Dates: start: 20081201

REACTIONS (3)
  - CHEST PAIN [None]
  - DIZZINESS [None]
  - NERVOUSNESS [None]
